FAERS Safety Report 10723025 (Version 1)
Quarter: 2015Q1

REPORT INFORMATION
  Report Type: Spontaneous
  Country: US (occurrence: US)
  Receive Date: 20150120
  Receipt Date: 20150120
  Transmission Date: 20150721
  Serious: No
  Sender: FDA-Public Use
  Company Number: US-009507513-1501USA006509

PATIENT
  Age: 59 Year
  Sex: Male

DRUGS (12)
  1. ASPIRIN. [Concomitant]
     Active Substance: ASPIRIN
     Dosage: UNK
  2. METOPROLOL [Concomitant]
     Active Substance: METOPROLOL
     Dosage: UNK
  3. TRAMADOL HYDROCHLORIDE. [Concomitant]
     Active Substance: TRAMADOL HYDROCHLORIDE
     Dosage: UNK
  4. GABAPENTIN. [Concomitant]
     Active Substance: GABAPENTIN
     Dosage: UNK
  5. FERROUS SULFATE [Concomitant]
     Active Substance: FERROUS SULFATE\FERROUS SULFATE, DRIED
     Dosage: UNK
  6. LANTUS [Concomitant]
     Active Substance: INSULIN GLARGINE
     Dosage: UNK
  7. NIMODIPINE. [Concomitant]
     Active Substance: NIMODIPINE
     Dosage: UNK
  8. ZETIA [Suspect]
     Active Substance: EZETIMIBE
     Dosage: 10 MG/ ONCE DAILY
     Route: 048
     Dates: start: 20141210, end: 20141217
  9. PRINIVIL [Concomitant]
     Active Substance: LISINOPRIL
     Dosage: UNK
     Route: 048
  10. LEVOTHYROXINE SODIUM. [Concomitant]
     Active Substance: LEVOTHYROXINE SODIUM
     Dosage: UNK
     Route: 048
  11. ATORVASTATIN [Concomitant]
     Active Substance: ATORVASTATIN
     Dosage: UNK
  12. NOVOLOG [Concomitant]
     Active Substance: INSULIN ASPART
     Dosage: UNK

REACTIONS (2)
  - Pain in extremity [Recovered/Resolved]
  - Restlessness [Recovered/Resolved]

NARRATIVE: CASE EVENT DATE: 20141213
